FAERS Safety Report 14673682 (Version 1)
Quarter: 2018Q1

REPORT INFORMATION
  Report Type: Spontaneous
  Country: KZ (occurrence: KZ)
  Receive Date: 20180323
  Receipt Date: 20180323
  Transmission Date: 20180509
  Serious: Yes (Life-Threatening)
  Sender: FDA-Public Use
  Company Number: KZ-VIIV HEALTHCARE LIMITED-KZ2018GSK044728

PATIENT
  Sex: Female
  Weight: 50 kg

DRUGS (2)
  1. TIVICAY [Suspect]
     Active Substance: DOLUTEGRAVIR SODIUM
     Indication: HIV INFECTION
     Dosage: 50 MG, UNK
     Dates: start: 20180208, end: 20180312
  2. TRUVADA [Concomitant]
     Active Substance: EMTRICITABINE\TENOFOVIR DISOPROXIL FUMARATE
     Indication: HIV INFECTION
     Dosage: UNK
     Dates: start: 20160603, end: 20180312

REACTIONS (7)
  - Headache [Unknown]
  - Hypertension [Unknown]
  - Pyrexia [Unknown]
  - Dizziness [Unknown]
  - Body temperature increased [Unknown]
  - Sleep disorder [Unknown]
  - Asthenia [Unknown]
